FAERS Safety Report 10059328 (Version 2)
Quarter: 2014Q3

REPORT INFORMATION
  Report Type: Spontaneous
  Country: US (occurrence: US)
  Receive Date: 20140404
  Receipt Date: 20140822
  Transmission Date: 20150326
  Serious: Yes (Hospitalization, Other)
  Sender: FDA-Public Use
  Company Number: US-BAYER-2014-050709

PATIENT
  Age: 44 Year
  Sex: Female
  Weight: 79.82 kg

DRUGS (4)
  1. BUTALBITAL [Concomitant]
     Active Substance: BUTALBITAL
  2. CLONIDINE. [Concomitant]
     Active Substance: CLONIDINE
     Indication: BLOOD PRESSURE
     Dosage: UNK
     Dates: start: 2005
  3. MIRENA [Suspect]
     Active Substance: LEVONORGESTREL
     Indication: MENORRHAGIA
  4. MIRENA [Suspect]
     Active Substance: LEVONORGESTREL
     Indication: CONTRACEPTION
     Dosage: 20 MCG/24HR, CONT
     Route: 015
     Dates: start: 20101027

REACTIONS (10)
  - Embedded device [None]
  - Injury [None]
  - Anxiety [None]
  - Headache [None]
  - Uterine haemorrhage [None]
  - Emotional distress [None]
  - Device issue [None]
  - Pain [None]
  - Device dislocation [None]
  - Device difficult to use [None]

NARRATIVE: CASE EVENT DATE: 2011
